FAERS Safety Report 6496957-8 (Version None)
Quarter: 2009Q4

REPORT INFORMATION
  Report Type: 
  Country: None (occurrence: None)
  Receive Date: 20091215
  Receipt Date: 20081106
  Transmission Date: 20100525
  Serious: No
  Sender: FDA-Public Use
  Company Number: A0755423A

PATIENT
  Age: 54 Year
  Sex: Male

DRUGS (3)
  1. AVODART [Suspect]
     Dosage: 1CAP PER DAY
     Route: 048
     Dates: start: 20080101
  2. DIOVAN [Concomitant]
  3. ATENOLOL [Concomitant]

REACTIONS (5)
  - BLOOD PRESSURE INCREASED [None]
  - HEADACHE [None]
  - HEART RATE IRREGULAR [None]
  - MALAISE [None]
  - PAIN [None]
